FAERS Safety Report 17022991 (Version 2)
Quarter: 2019Q4

REPORT INFORMATION
  Report Type: Spontaneous
  Country: US (occurrence: US)
  Receive Date: 20191112
  Receipt Date: 20191211
  Transmission Date: 20200122
  Serious: Yes (Hospitalization)
  Sender: FDA-Public Use
  Company Number: US-TEVA-2019-US-1135248

PATIENT
  Age: 63 Year
  Sex: Female

DRUGS (2)
  1. FOLIC ACID. [Concomitant]
     Active Substance: FOLIC ACID
     Dosage: RECEIVING FROM 9 YEARS
     Route: 065
  2. METHOTREXATE. [Suspect]
     Active Substance: METHOTREXATE
     Indication: RHEUMATOID ARTHRITIS
     Dosage: RECEIVING FROM 9 YEARS
     Route: 065

REACTIONS (4)
  - Pancytopenia [Recovered/Resolved]
  - Skin necrosis [Recovered/Resolved]
  - Drug level increased [Unknown]
  - Neutropenia [Unknown]
